FAERS Safety Report 7604682-2 (Version None)
Quarter: 2011Q3

REPORT INFORMATION
  Report Type: 
  Country: None (occurrence: None)
  Receive Date: 20110712
  Receipt Date: 20110627
  Transmission Date: 20111222
  Serious: No
  Sender: FDA-Public Use
  Company Number: US-B.I. PHARMACEUTICALS,INC./RIDGEFIELD-2011-BP-16436BP

PATIENT
  Age: 77 Year
  Sex: Female

DRUGS (12)
  1. OMEPRAZOLE [Concomitant]
     Indication: ULCER
     Dosage: 20 MG
  2. OMEPRAZOLE [Concomitant]
     Indication: GASTROOESOPHAGEAL REFLUX DISEASE
  3. PREMARIN [Concomitant]
     Indication: ROUTINE HEALTH MAINTENANCE
  4. BUMETANIDE [Concomitant]
     Indication: HYPERTENSION
     Dosage: 0.5 MG
  5. IMDUR [Concomitant]
     Indication: ATRIAL FIBRILLATION
  6. PEPCID [Concomitant]
     Indication: ULCER
     Dosage: 20 MG
  7. IMDUR [Concomitant]
     Indication: HYPERTENSION
     Dosage: 30 MG
  8. METOPROLOL TARTRATE [Concomitant]
     Indication: HYPERTENSION
     Dosage: 25 MG
  9. PEPCID [Concomitant]
     Indication: GASTROOESOPHAGEAL REFLUX DISEASE
  10. ZOLOFT [Concomitant]
     Indication: DEPRESSION
     Dosage: 25 MG
  11. PRADAXA [Suspect]
     Indication: ATRIAL FIBRILLATION
     Dosage: 300 MG
     Route: 048
     Dates: start: 20110527
  12. LEVOTHYROXINE SODIUM [Concomitant]
     Indication: THYROIDITIS
     Dosage: 0.125 MG

REACTIONS (4)
  - PAIN IN EXTREMITY [None]
  - HAEMATURIA [None]
  - SENSATION OF HEAVINESS [None]
  - BACK PAIN [None]
